FAERS Safety Report 5479355-5 (Version None)
Quarter: 2007Q4

REPORT INFORMATION
  Report Type: 
  Country: None (occurrence: None)
  Receive Date: 20071003
  Receipt Date: 20070921
  Transmission Date: 20080405
  Serious: Yes (Hospitalization)
  Sender: FDA-Public Use
  Company Number: 2007-03144

PATIENT
  Age: 70 Year
  Sex: Male
  Weight: 88.7 kg

DRUGS (20)
  1. VELCADE [Suspect]
     Indication: MANTLE CELL LYMPHOMA
     Dosage: 1.30 MG/M2, INTRAVENOUS; 0.70 MG/M2, INTRAVENOUS;
     Route: 042
     Dates: start: 20070629
  2. VELCADE [Suspect]
     Indication: MANTLE CELL LYMPHOMA
     Dosage: 1.30 MG/M2, INTRAVENOUS; 0.70 MG/M2, INTRAVENOUS;
     Route: 042
     Dates: start: 20070718
  3. RITUXAN [Suspect]
     Indication: MANTLE CELL LYMPHOMA
     Dosage: 375.00 MG/M2
     Dates: start: 20070629
  4. RITUXAN [Suspect]
     Indication: MANTLE CELL LYMPHOMA
     Dosage: 375.00 MG/M2
     Dates: start: 20070718
  5. RITUXAN [Suspect]
     Indication: MANTLE CELL LYMPHOMA
     Dosage: 375.00 MG/M2
     Dates: start: 20070905
  6. CYCLOPHOSPHAMIDE [Suspect]
     Indication: MANTLE CELL LYMPHOMA
     Dosage: 300.00 MG/M2, INTRAVENOUS
     Route: 042
     Dates: start: 20070629
  7. DOXORUBICIN HCL [Suspect]
     Indication: MANTLE CELL LYMPHOMA
     Dosage: 50.00 MG/KG, INTRAVENOUS
     Route: 042
     Dates: start: 20070629
  8. VINCRISTINE [Suspect]
     Indication: MANTLE CELL LYMPHOMA
     Dosage: 1.40 MG/M2, INTRAVENOUS
     Route: 042
     Dates: start: 20070629
  9. METHOTREXATE [Suspect]
     Indication: MANTLE CELL LYMPHOMA
     Dosage: 500.00 MG/M2
     Dates: start: 20070718
  10. METHOTREXATE [Suspect]
     Indication: MANTLE CELL LYMPHOMA
     Dosage: 500.00 MG/M2
     Dates: start: 20070905
  11. CYTARABINE [Suspect]
     Indication: MANTLE CELL LYMPHOMA
     Dosage: 0.50 MG/M2, INTRAVENOUS
     Route: 042
     Dates: start: 20070718
  12. CYTARABINE [Suspect]
     Indication: MANTLE CELL LYMPHOMA
     Dosage: 0.50 MG/M2, INTRAVENOUS
     Route: 042
     Dates: start: 20070905
  13. ACETAZOLAMIDE [Concomitant]
  14. AMLODIPINE [Concomitant]
  15. BENAZEPRIL HCL [Concomitant]
  16. CIPROFLOXACIN [Concomitant]
  17. FAMOTIDINE [Concomitant]
  18. NEUPOGEN [Concomitant]
  19. FLUCONAZOLE [Concomitant]
  20. VALACYCLOVIR [Concomitant]

REACTIONS (7)
  - ASTHENIA [None]
  - ATRIAL FIBRILLATION [None]
  - BLOOD PRESSURE DECREASED [None]
  - DEHYDRATION [None]
  - DILATATION ATRIAL [None]
  - DYSPNOEA [None]
  - LOSS OF CONSCIOUSNESS [None]
